FAERS Safety Report 6745055-4 (Version None)
Quarter: 2010Q2

REPORT INFORMATION
  Report Type: 
  Country: None (occurrence: None)
  Receive Date: 20100527
  Receipt Date: 20100522
  Transmission Date: 20101027
  Serious: Yes (Other)
  Sender: FDA-Public Use
  Company Number: US-JNJCH-2010012557

PATIENT
  Age: 12 Year
  Sex: Female

DRUGS (1)
  1. BENADRYL CHILDREN'S ALLERGY FASTMELT [Suspect]
     Indication: DRUG USE FOR UNKNOWN INDICATION
     Dosage: TEXT:THREE TABLETS
     Route: 048

REACTIONS (4)
  - HYPERSENSITIVITY [None]
  - SOMNOLENCE [None]
  - SWELLING FACE [None]
  - SYNCOPE [None]
